FAERS Safety Report 7144897-3 (Version None)
Quarter: 2010Q4

REPORT INFORMATION
  Report Type: 
  Country: None (occurrence: None)
  Receive Date: 20101123
  Receipt Date: 20101115
  Transmission Date: 20110411
  Serious: Yes (Disabling)
  Sender: FDA-Public Use
  Company Number: 2010EU005821

PATIENT
  Age: 65 Year
  Sex: Male
  Weight: 78 kg

DRUGS (10)
  1. PROGRAF [Suspect]
     Indication: RENAL TRANSPLANT
     Dosage: 1 MG, BID, ORAL
     Route: 048
  2. CELLCEPT [Concomitant]
  3. FUROSEMIDE [Concomitant]
  4. METOPROLOL SUCCINATE [Concomitant]
  5. LERCANIDIPINE [Concomitant]
  6. ASS (ACETYLSALICYLIC ACID) [Concomitant]
  7. ALLOPURINOL [Concomitant]
  8. DECOSTRIOL (CALCITRIOL) [Concomitant]
  9. SIMVASTATIN [Concomitant]
  10. RAMIPRIL [Concomitant]

REACTIONS (3)
  - BRONCHOPULMONARY DISEASE [None]
  - RESPIRATORY FAILURE [None]
  - RIGHT VENTRICULAR FAILURE [None]
